FAERS Safety Report 5676276-X (Version None)
Quarter: 2008Q1

REPORT INFORMATION
  Report Type: 
  Country: None (occurrence: None)
  Receive Date: 20080321
  Receipt Date: 20080319
  Transmission Date: 20080703
  Serious: Yes (Life-Threatening)
  Sender: FDA-Public Use
  Company Number: DE-BOEHRINGER INGELHEIM GMBH, GERMANY-2008-DE-01708DE

PATIENT
  Sex: Female
  Weight: 73 kg

DRUGS (5)
  1. SIFROL [Suspect]
     Indication: RESTLESS LEGS SYNDROME
     Route: 048
     Dates: end: 20080301
  2. CARBIDOPA + LEVODOPA [Concomitant]
     Indication: RESTLESS LEGS SYNDROME
     Route: 048
  3. NEUPRO [Concomitant]
     Indication: RESTLESS LEGS SYNDROME
     Route: 061
  4. SIMVASTATIN [Concomitant]
     Indication: HYPERCHOLESTEROLAEMIA
     Route: 048
  5. CUTANUM [Concomitant]
     Indication: MENOPAUSAL DISORDER
     Route: 061

REACTIONS (3)
  - FATIGUE [None]
  - SLEEP DISORDER [None]
  - SUDDEN ONSET OF SLEEP [None]
